FAERS Safety Report 6028680-8 (Version None)
Quarter: 2009Q1

REPORT INFORMATION
  Report Type: 
  Country: None (occurrence: None)
  Receive Date: 20090106
  Receipt Date: 20081222
  Transmission Date: 20090719
  Serious: Yes (Hospitalization)
  Sender: FDA-Public Use
  Company Number: JP-ROCHE-600668

PATIENT
  Sex: Male
  Weight: 78 kg

DRUGS (8)
  1. PEG-INTERFERON ALFA 2A (RO 25-8310) [Suspect]
     Indication: HEPATITIS C
     Route: 058
     Dates: start: 20070901, end: 20071201
  2. RIBAVIRIN [Suspect]
     Indication: HEPATITIS C
     Route: 048
     Dates: start: 20070901, end: 20071201
  3. EPADEL [Concomitant]
     Route: 048
     Dates: start: 20041127
  4. GASTER D [Concomitant]
     Route: 048
     Dates: start: 20041127
  5. MECOBALAMIN [Concomitant]
     Dosage: DRUG NAME REPORTED AS: METHYCOBIDE.
     Route: 048
     Dates: start: 20041127
  6. NOVORAPID [Concomitant]
     Dosage: DOSAGE REGIMEN REPORTED AS: 15 UT, 3/1 DAY
     Route: 023
     Dates: start: 20060506
  7. NOVOLIN N [Concomitant]
     Dosage: DOSAGE REGIMEN REPORTED AS: 14 UT, 1 PER DAY.
     Route: 023
     Dates: start: 20060506
  8. SPASMEX [Concomitant]
     Route: 048
     Dates: start: 20071127

REACTIONS (1)
  - PULMONARY FIBROSIS [None]
